FAERS Safety Report 10285162 (Version 7)
Quarter: 2015Q3

REPORT INFORMATION
  Report Type: Report from Study
  Country: US (occurrence: US)
  Receive Date: 20140708
  Receipt Date: 20150729
  Transmission Date: 20151125
  Serious: Yes (Hospitalization, Other)
  Sender: FDA-Public Use
  Company Number: US-SA-2014SA007658

PATIENT
  Age: 58 Year
  Sex: Female
  Weight: 87.9 kg

DRUGS (3)
  1. AUBAGIO [Suspect]
     Active Substance: TERIFLUNOMIDE
     Indication: MULTIPLE SCLEROSIS
     Route: 048
     Dates: start: 20131121, end: 20140710
  2. AUBAGIO [Suspect]
     Active Substance: TERIFLUNOMIDE
     Indication: MULTIPLE SCLEROSIS
     Dosage: MISSED 5 DOSES OF AUBAGIO
     Route: 048
     Dates: start: 20150614
  3. AUBAGIO [Suspect]
     Active Substance: TERIFLUNOMIDE
     Indication: MULTIPLE SCLEROSIS
     Dosage: MISSED 5 DOSES OF AUBAGIO
     Route: 048
     Dates: start: 20140711, end: 20141201

REACTIONS (22)
  - Emphysema [Unknown]
  - Pneumonia [Unknown]
  - Nuclear magnetic resonance imaging abnormal [Unknown]
  - Bronchitis [Unknown]
  - Hot flush [Unknown]
  - Hyperhidrosis [Not Recovered/Not Resolved]
  - Drug dose omission [Unknown]
  - Fatigue [Not Recovered/Not Resolved]
  - Feeling drunk [Unknown]
  - Feeling hot [Unknown]
  - Skin disorder [Unknown]
  - Gait disturbance [Unknown]
  - Asthenia [Not Recovered/Not Resolved]
  - Chest pain [Recovered/Resolved]
  - Palpitations [Recovering/Resolving]
  - Balance disorder [Unknown]
  - Insomnia [Unknown]
  - Cough [Unknown]
  - Upper respiratory tract infection [Unknown]
  - Dizziness [Unknown]
  - Vertigo [Recovered/Resolved]
  - Urinary incontinence [Not Recovered/Not Resolved]

NARRATIVE: CASE EVENT DATE: 2014
